FAERS Safety Report 12995196 (Version 1)
Quarter: 2016Q4

REPORT INFORMATION
  Report Type: Spontaneous
  Country: IT (occurrence: IT)
  Receive Date: 20161202
  Receipt Date: 20161202
  Transmission Date: 20170207
  Serious: Yes (Life-Threatening)
  Sender: FDA-Public Use
  Company Number: IT-BAYER-2016-228020

PATIENT
  Age: 58 Year
  Sex: Male

DRUGS (1)
  1. ASPIRINA 500 MG [Suspect]
     Active Substance: ASPIRIN
     Indication: INFLUENZA LIKE ILLNESS
     Dosage: 1000 MG, QD
     Route: 048
     Dates: start: 20161016, end: 20161016

REACTIONS (2)
  - Dyspnoea [Recovered/Resolved]
  - Dysphonia [Recovered/Resolved]

NARRATIVE: CASE EVENT DATE: 20161116
